FAERS Safety Report 20035518 (Version 3)
Quarter: 2022Q1

REPORT INFORMATION
  Report Type: Spontaneous
  Country: US (occurrence: US)
  Receive Date: 20211104
  Receipt Date: 20220204
  Transmission Date: 20220424
  Serious: Yes (Other)
  Sender: FDA-Public Use
  Company Number: US-KYOWAKIRIN-2021BKK018503

PATIENT

DRUGS (2)
  1. NOURIANZ [Suspect]
     Active Substance: ISTRADEFYLLINE
     Indication: Parkinson^s disease
     Dosage: 40 MG. DAILY
     Route: 048
     Dates: start: 20200317, end: 2021
  2. NOURIANZ [Suspect]
     Active Substance: ISTRADEFYLLINE
     Dosage: 40 MG. DAILY
     Route: 048
     Dates: start: 2021

REACTIONS (4)
  - Hallucination [Recovered/Resolved]
  - Parkinson^s disease [Not Recovered/Not Resolved]
  - Tremor [Recovered/Resolved]
  - Therapy non-responder [Not Recovered/Not Resolved]
